FAERS Safety Report 5484977-1 (Version None)
Quarter: 2007Q4

REPORT INFORMATION
  Report Type: 
  Country: None (occurrence: None)
  Receive Date: 20071004
  Receipt Date: 20070919
  Transmission Date: 20080405
  Serious: Yes (Hospitalization, Other)
  Sender: FDA-Public Use
  Company Number: AECAN200700193

PATIENT
  Age: 18 Year
  Sex: Female
  Weight: 63.5036 kg

DRUGS (3)
  1. GAMUNEX [Suspect]
     Indication: TOXIC SHOCK SYNDROME
     Dosage: 10 GM; IV
     Route: 042
     Dates: start: 20070730, end: 20070801
  2. ANCEF [Concomitant]
  3. GAMUNEX [Suspect]
     Indication: TOXIC SHOCK SYNDROME

REACTIONS (6)
  - ATELECTASIS [None]
  - FLUID OVERLOAD [None]
  - HYPOVENTILATION [None]
  - PLATELET COUNT DECREASED [None]
  - PULMONARY OEDEMA [None]
  - TRANSFUSION-RELATED ACUTE LUNG INJURY [None]
